FAERS Safety Report 24978895 (Version 1)
Quarter: 2025Q1

REPORT INFORMATION
  Report Type: Spontaneous
  Country: US (occurrence: US)
  Receive Date: 20250218
  Receipt Date: 20250218
  Transmission Date: 20250409
  Serious: Yes (Other)
  Sender: GLAXOSMITHKLINE
  Company Number: US-GSK-US2025015086

PATIENT

DRUGS (2)
  1. BENLYSTA [Suspect]
     Active Substance: BELIMUMAB
     Indication: Systemic lupus erythematosus
     Dosage: 200 MG/ML, WE
     Dates: end: 20250105
  2. TOPAMAX [Concomitant]
     Active Substance: TOPIRAMATE
     Indication: Epilepsy

REACTIONS (4)
  - Pneumonia [Not Recovered/Not Resolved]
  - Pleurisy [Not Recovered/Not Resolved]
  - Pericardial effusion [Unknown]
  - Nasopharyngitis [Not Recovered/Not Resolved]

NARRATIVE: CASE EVENT DATE: 20250105
